FAERS Safety Report 5398977-3 (Version None)
Quarter: 2007Q3

REPORT INFORMATION
  Report Type: 
  Country: None (occurrence: None)
  Receive Date: 20070724
  Receipt Date: 20070724
  Transmission Date: 20080115
  Serious: Yes (Hospitalization)
  Sender: FDA-Public Use
  Company Number: None

PATIENT
  Sex: Female
  Weight: 76 kg

DRUGS (2)
  1. CYCLOPHOSPHAMIDE [Suspect]
     Dosage: 4207 MG
  2. DOXORUBICIN HYDROCHLORIDE [Suspect]
     Dosage: 421 MG

REACTIONS (8)
  - BACTEROIDES INFECTION [None]
  - BREAST INFECTION [None]
  - BREAST NECROSIS [None]
  - CORYNEBACTERIUM INFECTION [None]
  - HAEMATOCRIT DECREASED [None]
  - HAEMOGLOBIN DECREASED [None]
  - WOUND DEHISCENCE [None]
  - WOUND INFECTION STAPHYLOCOCCAL [None]
